FAERS Safety Report 18693292 (Version 1)
Quarter: 2021Q1

REPORT INFORMATION
  Report Type: Spontaneous
  Country: US (occurrence: US)
  Receive Date: 20210104
  Receipt Date: 20210104
  Transmission Date: 20210419
  Serious: Yes (Hospitalization, Other)
  Sender: FDA-Public Use
  Company Number: US-APOTEX-2020AP025080

PATIENT
  Age: 70 Year
  Sex: Female

DRUGS (1)
  1. METFORMIN [Suspect]
     Active Substance: METFORMIN HYDROCHLORIDE
     Indication: TYPE 2 DIABETES MELLITUS
     Dosage: UNK (OVER DOSE)
     Route: 065

REACTIONS (7)
  - Toxicity to various agents [Recovered/Resolved]
  - Diabetic ketoacidosis [Recovered/Resolved]
  - Drug level increased [Recovered/Resolved]
  - Encephalopathy [Recovered/Resolved]
  - Accidental overdose [Recovered/Resolved]
  - Abdominal pain [Recovered/Resolved]
  - Lethargy [Recovered/Resolved]
